FAERS Safety Report 13270327 (Version 3)
Quarter: 2017Q1

REPORT INFORMATION
  Report Type: Spontaneous
  Country: US (occurrence: US)
  Receive Date: 20170224
  Receipt Date: 20170309
  Transmission Date: 20170428
  Serious: No
  Sender: FDA-Public Use
  Company Number: US-GLAXOSMITHKLINE-US2017GSK026074

PATIENT
  Sex: Female

DRUGS (15)
  1. OMEGA 3 [Concomitant]
     Active Substance: OMEGA-3 FATTY ACIDS
  2. PROVENTIL [Concomitant]
     Active Substance: ALBUTEROL
  3. NICOTINE. [Concomitant]
     Active Substance: NICOTINE
  4. NYSTATIN. [Concomitant]
     Active Substance: NYSTATIN
  5. PREDNISONE. [Concomitant]
     Active Substance: PREDNISONE
  6. HYDROCODONE-ACETAMINOPHEN [Concomitant]
     Active Substance: ACETAMINOPHEN\HYDROCODONE
  7. ALENDRONATE [Concomitant]
     Active Substance: ALENDRONATE SODIUM
  8. SILDENAFIL. [Concomitant]
     Active Substance: SILDENAFIL
  9. VENTAVIS [Concomitant]
     Active Substance: ILOPROST
  10. ANORO ELLIPTA [Suspect]
     Active Substance: UMECLIDINIUM BROMIDE\VILANTEROL TRIFENATATE
     Indication: PRODUCT USED FOR UNKNOWN INDICATION
     Dosage: 1 PUFF(S), QD
     Dates: start: 20150624
  11. DOXYCYCLINE. [Concomitant]
     Active Substance: DOXYCYCLINE
  12. LETAIRIS [Concomitant]
     Active Substance: AMBRISENTAN
  13. LORAZEPAM. [Concomitant]
     Active Substance: LORAZEPAM
  14. ALEVE [Concomitant]
     Active Substance: NAPROXEN SODIUM
  15. DILTIAZEM. [Concomitant]
     Active Substance: DILTIAZEM

REACTIONS (3)
  - Palpitations [Unknown]
  - Feeling abnormal [Unknown]
  - Drug dose omission [Unknown]
